FAERS Safety Report 14797779 (Version 2)
Quarter: 2018Q2

REPORT INFORMATION
  Report Type: Report from Study
  Country: None (occurrence: CA)
  Receive Date: 20180424
  Receipt Date: 20180426
  Transmission Date: 20180711
  Serious: Yes (Hospitalization, Other)
  Sender: FDA-Public Use
  Company Number: CA-ABBVIE-18K-028-2278897-00

PATIENT
  Age: 47 Year
  Sex: Male
  Weight: 63.56 kg

DRUGS (2)
  1. HUMIRA [Suspect]
     Active Substance: ADALIMUMAB
     Route: 058
     Dates: start: 20180302, end: 2018
  2. HUMIRA [Suspect]
     Active Substance: ADALIMUMAB
     Indication: CROHN^S DISEASE
     Route: 058
     Dates: start: 20110322, end: 2018

REACTIONS (9)
  - Fistula [Recovered/Resolved]
  - Abscess [Recovered/Resolved]
  - Abdominal distension [Unknown]
  - Drug ineffective [Unknown]
  - Jaundice [Unknown]
  - Food intolerance [Unknown]
  - Gastrointestinal obstruction [Unknown]
  - Sepsis [Recovered/Resolved]
  - Procedural pain [Unknown]

NARRATIVE: CASE EVENT DATE: 2018
